FAERS Safety Report 13079359 (Version 1)
Quarter: 2017Q1

REPORT INFORMATION
  Report Type: Spontaneous
  Country: US (occurrence: US)
  Receive Date: 20170103
  Receipt Date: 20170103
  Transmission Date: 20170428
  Serious: No
  Sender: FDA-Public Use
  Company Number: US-BIOGEN-2016BI00337104

PATIENT
  Sex: Female

DRUGS (1)
  1. TYSABRI [Suspect]
     Active Substance: NATALIZUMAB
     Indication: MULTIPLE SCLEROSIS
     Route: 042

REACTIONS (6)
  - Fall [Recovered/Resolved]
  - Ataxia [Unknown]
  - White blood cell count decreased [Unknown]
  - Cerebral disorder [Unknown]
  - Gait disturbance [Unknown]
  - Balance disorder [Unknown]
